FAERS Safety Report 4277394-3 (Version None)
Quarter: 2004Q1

REPORT INFORMATION
  Report Type: 
  Country: None (occurrence: None)
  Receive Date: 20040121
  Receipt Date: 20040107
  Transmission Date: 20041129
  Serious: Yes (Hospitalization)
  Sender: FDA-Public Use
  Company Number: US-SHR-03-016076

PATIENT
  Age: 45 Year
  Sex: Male
  Weight: 90.7 kg

DRUGS (13)
  1. BETASERON [Suspect]
     Indication: MULTIPLE SCLEROSIS
     Dosage: 8 MIU, EVERY 2D, SUBCUTANEOUS
     Route: 058
     Dates: start: 19920101
  2. DIOVAN ^NOVARTIS^ (VALSARTAN) [Concomitant]
  3. AVANDIA [Concomitant]
  4. LIPITOR [Concomitant]
  5. PROPOXYPHENE HCL [Concomitant]
  6. AMANTADINE HCL [Concomitant]
  7. PROZAC [Concomitant]
  8. CELEBREX [Concomitant]
  9. SPIRONOLACTONE [Concomitant]
  10. AMBIEN [Concomitant]
  11. TRINALIN (PSEUDOEPHEDRINE SULFATE, AZATADINE MALEATE) COATED TABLET [Concomitant]
  12. ENTEX LA (GUAIFENESIN, PHENYLEPHRINE HYDROCHLORIDE) [Concomitant]
  13. MULTIVITAMINS (PANTHENOL, RETINOL) [Concomitant]

REACTIONS (8)
  - ACUTE CORONARY SYNDROME [None]
  - CORONARY ARTERY ATHEROSCLEROSIS [None]
  - CORONARY ARTERY DISEASE [None]
  - CORONARY ARTERY OCCLUSION [None]
  - DIZZINESS [None]
  - HYPERHIDROSIS [None]
  - MYOCARDIAL INFARCTION [None]
  - NAUSEA [None]
